FAERS Safety Report 12258984 (Version 3)
Quarter: 2016Q2

REPORT INFORMATION
  Report Type: Spontaneous
  Country: US (occurrence: US)
  Receive Date: 20160412
  Receipt Date: 20160608
  Transmission Date: 20160815
  Serious: Yes (Other)
  Sender: FDA-Public Use
  Company Number: US-ASTRAZENECA-2016SE36968

PATIENT
  Age: 80 Year
  Sex: Female

DRUGS (25)
  1. VITAMIN D3 [Concomitant]
     Active Substance: CHOLECALCIFEROL
     Dosage: DAILY
  2. IBRANCE [Suspect]
     Active Substance: PALBOCICLIB
     Dosage: PALBOCICLIB 100 MG DAILY
     Route: 048
     Dates: start: 20150413
  3. ACETAMINOPHEN. [Concomitant]
     Active Substance: ACETAMINOPHEN
     Dosage: AS NEEDED
  4. VITAMIN B6 [Concomitant]
     Active Substance: PYRIDOXINE HYDROCHLORIDE
     Dosage: DAILY
  5. ARIMIDEX [Suspect]
     Active Substance: ANASTROZOLE
     Route: 048
     Dates: end: 20120628
  6. FASLODEX [Suspect]
     Active Substance: FULVESTRANT
     Indication: METASTASES TO BONE
     Route: 030
     Dates: start: 20120628, end: 20150413
  7. AROMASIN [Suspect]
     Active Substance: EXEMESTANE
     Route: 048
     Dates: start: 20150413
  8. VITAMIN E [Concomitant]
     Active Substance: .ALPHA.-TOCOPHEROL
     Dosage: DAILY
  9. FISH OIL [Concomitant]
     Active Substance: FISH OIL
     Dosage: DAILY
  10. CALCIUM 500 + D [Concomitant]
     Active Substance: CALCIUM\VITAMIN D
  11. VITAMIN C [Concomitant]
     Active Substance: ASCORBIC ACID
     Dosage: DAILY
  12. VITAMIN B12 [Concomitant]
     Active Substance: CYANOCOBALAMIN
     Dosage: DAILY
  13. TYLENOL ARTHRITIS PAIN [Concomitant]
     Active Substance: ACETAMINOPHEN
     Dosage: AS NEEDED
  14. TRAMADOL. [Concomitant]
     Active Substance: TRAMADOL
     Dosage: TWICE A DAY
  15. XGEVA [Concomitant]
     Active Substance: DENOSUMAB
     Indication: METASTASES TO BONE
  16. TRAMADOL. [Concomitant]
     Active Substance: TRAMADOL
  17. LEVOTHYROXINE. [Concomitant]
     Active Substance: LEVOTHYROXINE
  18. IRON [Concomitant]
     Active Substance: IRON
     Dosage: 65.0MG AS REQUIRED
  19. LEVAQUIN [Concomitant]
     Active Substance: LEVOFLOXACIN
  20. ATENOLOL. [Suspect]
     Active Substance: ATENOLOL
     Route: 065
  21. IBRANCE [Suspect]
     Active Substance: PALBOCICLIB
     Dosage: 1 CAPSULE BY MOUTH DAILY X 3 WEEKS 12.5 MG
     Route: 048
  22. COMPAZINE [Concomitant]
     Active Substance: PROCHLORPERAZINE MALEATE
  23. OCUVITE [Concomitant]
     Active Substance: VITAMINS
  24. BACTRIM [Concomitant]
     Active Substance: SULFAMETHOXAZOLE\TRIMETHOPRIM
     Dosage: 1 TAB TWICE A DAY 400-80 MG
  25. ZOMETA [Concomitant]
     Active Substance: ZOLEDRONIC ACID
     Indication: METASTASES TO BONE
     Dosage: MONTHLY
     Dates: start: 20120428

REACTIONS (4)
  - Metastases to liver [Unknown]
  - Malignant neoplasm progression [Unknown]
  - Neutropenia [Unknown]
  - Sinus congestion [Unknown]

NARRATIVE: CASE EVENT DATE: 2012
